FAERS Safety Report 7939749-2 (Version None)
Quarter: 2011Q4

REPORT INFORMATION
  Report Type: 
  Country: None (occurrence: None)
  Receive Date: 20111125
  Receipt Date: 20111121
  Transmission Date: 20120403
  Serious: Yes (Other)
  Sender: FDA-Public Use
  Company Number: PHHY2010CA45059

PATIENT
  Sex: Female

DRUGS (5)
  1. CALCIUM [Concomitant]
     Dosage: UNK UKN, UNK
  2. ZOLEDRONOC ACID [Suspect]
     Route: 042
     Dates: start: 20090726
  3. ZOLEDRONOC ACID [Suspect]
     Indication: OSTEOPOROSIS
     Dosage: 5 MG, YEARLY
     Route: 042
     Dates: start: 20080727
  4. ZOLEDRONOC ACID [Suspect]
     Route: 042
     Dates: start: 20101204
  5. VITAMIN D [Concomitant]
     Dosage: UNK UKN, UNK

REACTIONS (4)
  - VISUAL IMPAIRMENT [None]
  - ATRIAL FIBRILLATION [None]
  - CATARACT [None]
  - GLAUCOMA [None]
